FAERS Safety Report 8765771 (Version 4)
Quarter: 2013Q1

REPORT INFORMATION
  Report Type: Spontaneous
  Country: US (occurrence: US)
  Receive Date: 20120904
  Receipt Date: 20130322
  Transmission Date: 20140127
  Serious: Yes (Other)
  Sender: FDA-Public Use
  Company Number: US-PFIZER INC-2012215002

PATIENT
  Age: 63 Year
  Sex: Female
  Weight: 77.1 kg

DRUGS (20)
  1. SUTENT [Suspect]
     Indication: METASTATIC RENAL CELL CARCINOMA
     Dosage: 50 MG, DAILY
     Dates: start: 20120329
  2. SUTENT [Suspect]
     Dosage: 37.5 MG, CYCLIC: 28 DAYS ON, 14 DAYS OFF
     Route: 048
     Dates: start: 20120510
  3. SYNTHROID [Suspect]
     Indication: THYROID DISORDER
     Dosage: UNK, 1X/DAY
     Dates: end: 201301
  4. SYNTHROID [Suspect]
     Dosage: 88 UG, 1X/DAY
     Dates: start: 201301
  5. ALLEGRA [Suspect]
     Indication: SWELLING FACE
     Dosage: UNK, DAILY
     Dates: start: 2012
  6. LISINOPRIL [Concomitant]
     Indication: BLOOD PRESSURE ABNORMAL
     Dosage: 5 MG, DAILY
  7. LISINOPRIL [Concomitant]
     Indication: HYPERTENSION
  8. LEVOTHYROXINE [Concomitant]
     Indication: THYROID DISORDER
     Dosage: 25 UG, DAILY
  9. LEVOTHYROXINE [Concomitant]
     Dosage: 50 UG, UNK
  10. LEVOTHYROXINE [Concomitant]
     Dosage: 75 UG, UNK
     Dates: start: 20130107
  11. PERCOCET [Concomitant]
  12. NYSTATIN SWISH [Concomitant]
  13. MIRALAX [Concomitant]
  14. OXYCODONE [Concomitant]
  15. VITAMIN D [Concomitant]
  16. PRILOSEC [Concomitant]
     Indication: GASTROOESOPHAGEAL REFLUX DISEASE
     Dosage: 40 MG, 1X/DAY
  17. CYMBALTA [Concomitant]
     Indication: FIBROMYALGIA
     Dosage: 60 MG, UNK
  18. FOLIC ACID [Concomitant]
  19. ATENOLOL [Concomitant]
     Indication: HYPERTENSION
     Dosage: 25 MG, 1X/DAY
  20. COMPAZINE [Concomitant]

REACTIONS (17)
  - Hypersomnia [Unknown]
  - Somnolence [Recovered/Resolved]
  - Jaundice [Recovered/Resolved]
  - Yellow skin [Recovered/Resolved]
  - Fatigue [Not Recovered/Not Resolved]
  - Amnesia [Recovering/Resolving]
  - Fear [Recovering/Resolving]
  - Sinus disorder [Unknown]
  - Nasal discomfort [Recovered/Resolved]
  - Nasopharyngitis [Unknown]
  - Oral pain [Recovered/Resolved]
  - Swelling face [Recovered/Resolved]
  - Rash [Recovered/Resolved]
  - Dizziness [Not Recovered/Not Resolved]
  - Hair colour changes [Not Recovered/Not Resolved]
  - Nausea [Recovering/Resolving]
  - Thyroid function test abnormal [Not Recovered/Not Resolved]
